FAERS Safety Report 23019391 (Version 1)
Quarter: 2023Q4

REPORT INFORMATION
  Report Type: Spontaneous
  Country: RU (occurrence: None)
  Receive Date: 20231003
  Receipt Date: 20231003
  Transmission Date: 20240109
  Serious: Yes (Other)
  Sender: FDA-Public Use
  Company Number: RU-ROCHE-3427526

PATIENT
  Age: 47 Year
  Sex: Female

DRUGS (4)
  1. TRASTUZUMAB [Suspect]
     Active Substance: TRASTUZUMAB
     Indication: Breast cancer
     Route: 058
     Dates: start: 20220203
  2. TRASTUZUMAB [Suspect]
     Active Substance: TRASTUZUMAB
     Dosage: 3RD CYCLE
     Route: 058
     Dates: start: 20220325
  3. PERTUZUMAB [Suspect]
     Active Substance: PERTUZUMAB
     Indication: Breast cancer
     Dosage: 600 MG/10 ML
     Route: 058
     Dates: start: 20220203
  4. PERTUZUMAB [Suspect]
     Active Substance: PERTUZUMAB
     Dosage: 600 MG/10 ML, 3RD CYCLE
     Route: 058
     Dates: start: 20220325, end: 20220328

REACTIONS (10)
  - Aortic arteriosclerosis [Unknown]
  - Kidney fibrosis [Unknown]
  - Hypoaesthesia [Unknown]
  - Mitral valve calcification [Unknown]
  - Aortic valve calcification [Unknown]
  - Heart valve incompetence [Unknown]
  - Splenic cyst [Unknown]
  - Renal cyst [Unknown]
  - Hydronephrosis [Unknown]
  - Cholelithiasis [Unknown]

NARRATIVE: CASE EVENT DATE: 20220413
